FAERS Safety Report 8261899-4 (Version None)
Quarter: 2012Q2

REPORT INFORMATION
  Report Type: 
  Country: None (occurrence: None)
  Receive Date: 20120402
  Receipt Date: 20120323
  Transmission Date: 20120825
  Serious: Yes (Hospitalization)
  Sender: FDA-Public Use
  Company Number: 2012SP016149

PATIENT
  Age: 31 Year
  Sex: Male

DRUGS (4)
  1. VENLAFAXINE [Suspect]
     Indication: PRODUCT USED FOR UNKNOWN INDICATION
     Dates: start: 20111227, end: 20111227
  2. REMERON [Suspect]
     Indication: PRODUCT USED FOR UNKNOWN INDICATION
     Dates: start: 20111227, end: 20111227
  3. SEROQUEL XR [Suspect]
     Indication: PRODUCT USED FOR UNKNOWN INDICATION
     Dosage: 200 MG;ONCE 400 MG;ONCE
     Dates: start: 20111227, end: 20111227
  4. SEROQUEL XR [Suspect]
     Indication: PRODUCT USED FOR UNKNOWN INDICATION
     Dosage: 200 MG;ONCE 400 MG;ONCE
     Dates: start: 20111227, end: 20111227

REACTIONS (7)
  - AGITATION [None]
  - OVERDOSE [None]
  - COMA SCALE ABNORMAL [None]
  - SOMNOLENCE [None]
  - COMPLETED SUICIDE [None]
  - HYPOKALAEMIA [None]
  - POISONING [None]
